FAERS Safety Report 6163525-7 (Version None)
Quarter: 2009Q2

REPORT INFORMATION
  Report Type: 
  Country: None (occurrence: None)
  Receive Date: 20090422
  Receipt Date: 20090415
  Transmission Date: 20091009
  Serious: No
  Sender: FDA-Public Use
  Company Number: US-BIOGENIDEC-2009BI001600

PATIENT
  Age: 50 Year
  Sex: Female

DRUGS (2)
  1. TYSABRI [Suspect]
     Indication: MULTIPLE SCLEROSIS
     Route: 042
     Dates: start: 20080812, end: 20090201
  2. TYSABRI [Suspect]
     Route: 042
     Dates: start: 20090401

REACTIONS (17)
  - ARTHRITIS [None]
  - ATAXIA [None]
  - COGNITIVE DISORDER [None]
  - DEPRESSION [None]
  - DYSPHEMIA [None]
  - FAECAL INCONTINENCE [None]
  - FEELING HOT [None]
  - HEARING IMPAIRED [None]
  - IMPATIENCE [None]
  - MIGRAINE [None]
  - MOBILITY DECREASED [None]
  - PERIPHERAL COLDNESS [None]
  - POST-TRAUMATIC STRESS DISORDER [None]
  - SPEECH DISORDER [None]
  - TENDONITIS [None]
  - URINARY INCONTINENCE [None]
  - VISION BLURRED [None]
